FAERS Safety Report 9467562 (Version 4)
Quarter: 2013Q4

REPORT INFORMATION
  Report Type: Report from Study
  Country: CO (occurrence: CO)
  Receive Date: 20130821
  Receipt Date: 20131001
  Transmission Date: 20140711
  Serious: Yes (Other)
  Sender: FDA-Public Use
  Company Number: CO-ROCHE-1264337

PATIENT
  Age: 65 Year
  Sex: Female
  Weight: 52 kg

DRUGS (4)
  1. LUCENTIS [Suspect]
     Indication: MACULAR DEGENERATION
     Route: 050
     Dates: start: 20130528
  2. LUCENTIS [Suspect]
     Route: 050
     Dates: start: 20130702
  3. LUCENTIS [Suspect]
     Route: 050
     Dates: start: 20130813
  4. LATANOPROST [Concomitant]

REACTIONS (2)
  - Conjunctivitis [Recovered/Resolved]
  - Drug ineffective [Unknown]
